FAERS Safety Report 6716475-9 (Version None)
Quarter: 2010Q2

REPORT INFORMATION
  Report Type: 
  Country: None (occurrence: None)
  Receive Date: 20100507
  Receipt Date: 20100427
  Transmission Date: 20101027
  Serious: Yes (Other)
  Sender: FDA-Public Use
  Company Number: PHHY2010TR27298

PATIENT
  Sex: Female
  Weight: 78 kg

DRUGS (2)
  1. EVEROLIMUS [Suspect]
     Indication: RENAL TRANSPLANT
     Dosage: 1.5 MG/DAY
     Route: 048
     Dates: start: 20100119
  2. MYCOPHENOLATE MOFETIL [Concomitant]
     Dosage: 2 G
     Dates: start: 20070703

REACTIONS (4)
  - AMENORRHOEA [None]
  - HAEMOGLOBIN DECREASED [None]
  - LOW DENSITY LIPOPROTEIN INCREASED [None]
  - SINUS TACHYCARDIA [None]
